FAERS Safety Report 9802179 (Version 1)
Quarter: 2014Q1

REPORT INFORMATION
  Report Type: Spontaneous
  Country: US (occurrence: US)
  Receive Date: 20140107
  Receipt Date: 20140107
  Transmission Date: 20141002
  Serious: Yes (Life-Threatening, Hospitalization)
  Sender: FDA-Public Use
  Company Number: US-BRISTOL-MYERS SQUIBB COMPANY-19967041

PATIENT
  Age: 53 Year
  Sex: Female

DRUGS (4)
  1. METFORMIN HCL [Suspect]
  2. CAPTOPRIL [Suspect]
  3. TRACLEER [Suspect]
     Indication: PULMONARY ARTERIAL HYPERTENSION
     Route: 048
     Dates: start: 20120907
  4. PLAVIX [Concomitant]

REACTIONS (1)
  - Hypersensitivity [Recovered/Resolved]
